FAERS Safety Report 6886169-8 (Version None)
Quarter: 2010Q3

REPORT INFORMATION
  Report Type: 
  Country: None (occurrence: None)
  Receive Date: 20100729
  Receipt Date: 20080129
  Transmission Date: 20110219
  Serious: No
  Sender: FDA-Public Use
  Company Number: US-PFIZER INC-2008005038

PATIENT
  Sex: Male
  Weight: 71.8 kg

DRUGS (19)
  1. CELEBREX [Suspect]
     Indication: PAIN
  2. LYRICA [Suspect]
     Indication: PAIN
  3. CYMBALTA [Concomitant]
  4. AVODART [Concomitant]
  5. UROXATRAL [Concomitant]
  6. PRILOSEC [Concomitant]
  7. PRILOSEC [Concomitant]
  8. K-DUR [Concomitant]
  9. XANAX [Concomitant]
  10. LEVOXYL [Concomitant]
  11. TRAMADOL HYDROCHLORIDE [Concomitant]
  12. NIFEREX FORTE [Concomitant]
  13. ZOMETA [Concomitant]
  14. ROCALTROL [Concomitant]
  15. MIACALCIN [Concomitant]
  16. TOPROL-XL [Concomitant]
  17. VITAMINS [Concomitant]
  18. PROCRIT [Concomitant]
  19. ARANESP [Concomitant]

REACTIONS (2)
  - DRUG LEVEL DECREASED [None]
  - PAIN [None]
